FAERS Safety Report 20306265 (Version 1)
Quarter: 2022Q1

REPORT INFORMATION
  Report Type: Spontaneous
  Country: US (occurrence: US)
  Receive Date: 20220106
  Receipt Date: 20220106
  Transmission Date: 20220424
  Serious: No
  Sender: FDA-Public Use
  Company Number: US-TAKEDA-2022TUS000604

PATIENT
  Sex: Male
  Weight: 104 kg

DRUGS (1)
  1. MOTEGRITY [Suspect]
     Active Substance: PRUCALOPRIDE SUCCINATE
     Indication: Irritable bowel syndrome
     Dosage: 2 MILLIGRAM
     Route: 048

REACTIONS (4)
  - Nasopharyngitis [Unknown]
  - Pain [Unknown]
  - Headache [Unknown]
  - Malaise [Unknown]
